FAERS Safety Report 4721868-5 (Version None)
Quarter: 2005Q3

REPORT INFORMATION
  Report Type: 
  Country: None (occurrence: None)
  Receive Date: 20050721
  Receipt Date: 20050517
  Transmission Date: 20060218
  Serious: Yes (Other)
  Sender: FDA-Public Use
  Company Number: US-BRISTOL-MYERS SQUIBB COMPANY-12971016

PATIENT
  Age: 40 Year
  Sex: Female

DRUGS (2)
  1. COUMADIN [Suspect]
     Indication: ANTICOAGULANT THERAPY
     Dates: start: 20050201
  2. CAMPRAL [Suspect]
     Indication: ALCOHOLISM
     Route: 048
     Dates: start: 20050401

REACTIONS (1)
  - INTERNATIONAL NORMALISED RATIO INCREASED [None]
